FAERS Safety Report 19159847 (Version 1)
Quarter: 2021Q2

REPORT INFORMATION
  Report Type: Spontaneous
  Country: US (occurrence: US)
  Receive Date: 20210420
  Receipt Date: 20210420
  Transmission Date: 20210717
  Serious: No
  Sender: FDA-Public Use
  Company Number: US-DRREDDYS-USA/USA/21/0134511

PATIENT
  Age: 34 Year
  Sex: Male

DRUGS (1)
  1. ZENATANE [Suspect]
     Active Substance: ISOTRETINOIN
     Indication: PRODUCT USED FOR UNKNOWN INDICATION
     Dosage: RMA ISSUE DATE: 9/16/2020 5:53:04 PM, 2/12/2021 5:29:04 PM, 2/23/2021 4:55:08 PM
     Route: 048

REACTIONS (1)
  - Dehydration [Unknown]
